FAERS Safety Report 15306046 (Version 1)
Quarter: 2018Q3

REPORT INFORMATION
  Report Type: Spontaneous
  Country: US (occurrence: US)
  Receive Date: 20180822
  Receipt Date: 20180822
  Transmission Date: 20181010
  Serious: Yes (Other)
  Sender: FDA-Public Use
  Company Number: US-ASTRAZENECA-2018SF03823

PATIENT
  Sex: Male

DRUGS (1)
  1. OLAPARIB. [Suspect]
     Active Substance: OLAPARIB
     Indication: PROSTATE CANCER METASTATIC
     Route: 048

REACTIONS (7)
  - Metastases to bone [Unknown]
  - Product use in unapproved indication [Unknown]
  - Acquired gene mutation [Unknown]
  - Off label use [Unknown]
  - Metastases to liver [Unknown]
  - Prostatic specific antigen increased [Unknown]
  - Drug resistance [Unknown]
